FAERS Safety Report 25980043 (Version 1)
Quarter: 2025Q4

REPORT INFORMATION
  Report Type: Spontaneous
  Country: US (occurrence: None)
  Receive Date: 20251030
  Receipt Date: 20251030
  Transmission Date: 20260118
  Serious: No
  Sender: FDA-CTU
  Company Number: None

PATIENT
  Age: 38 Year
  Sex: Female
  Weight: 121.5 kg

DRUGS (7)
  1. TALTZ [Suspect]
     Active Substance: IXEKIZUMAB
     Indication: Psoriasis
     Dosage: OTHER QUANTITY : 2 INJECTION(S);?OTHER FREQUENCY : 1 PER MONTH;?
     Route: 058
     Dates: start: 20251017
  2. TALTZ [Suspect]
     Active Substance: IXEKIZUMAB
     Indication: Psoriatic arthropathy
  3. LESSINA [Concomitant]
     Active Substance: ETHINYL ESTRADIOL\LEVONORGESTREL
  4. LEVOTHYROXINE [Concomitant]
     Active Substance: LEVOTHYROXINE
  5. SPIRONOLACTONE [Concomitant]
     Active Substance: SPIRONOLACTONE
  6. VITAMIN D [Concomitant]
     Active Substance: VITAMIN D NOS
  7. IRON [Concomitant]
     Active Substance: IRON

REACTIONS (2)
  - Injection site pruritus [None]
  - Injection site rash [None]

NARRATIVE: CASE EVENT DATE: 20251028
